FAERS Safety Report 9219345 (Version 1)
Quarter: 2013Q2

REPORT INFORMATION
  Report Type: Spontaneous
  Country: PE (occurrence: PE)
  Receive Date: 20130409
  Receipt Date: 20130409
  Transmission Date: 20140414
  Serious: Yes (Other)
  Sender: FDA-Public Use
  Company Number: PE-PFIZER INC-2013108590

PATIENT
  Age: 51 Year
  Sex: Female

DRUGS (2)
  1. ZOLOFT [Suspect]
     Dosage: UNK
     Route: 048
  2. XANAX [Suspect]
     Dosage: UNK
     Route: 048

REACTIONS (2)
  - Fall [Unknown]
  - Clavicle fracture [Unknown]
